FAERS Safety Report 7670747-2 (Version None)
Quarter: 2011Q3

REPORT INFORMATION
  Report Type: 
  Country: None (occurrence: None)
  Receive Date: 20110803
  Receipt Date: 20110719
  Transmission Date: 20111222
  Serious: Yes (Other)
  Sender: FDA-Public Use
  Company Number: 2011MA009074

PATIENT
  Age: 32 Year
  Sex: Female

DRUGS (2)
  1. PREDNISOLONE [Concomitant]
  2. SULFATRIM [Suspect]
     Indication: PNEUMOCYSTIS JIROVECI PNEUMONIA
     Dosage: 1800 MG; BID; IV
     Route: 042

REACTIONS (5)
  - ACUTE PSYCHOSIS [None]
  - PHYSICAL ABUSE [None]
  - PERSECUTORY DELUSION [None]
  - VERBAL ABUSE [None]
  - AGGRESSION [None]
